FAERS Safety Report 8959142 (Version 1)
Quarter: 2012Q4

REPORT INFORMATION
  Report Type: 
  Country: US (occurrence: US)
  Receive Date: 20121211
  Receipt Date: 20121211
  Transmission Date: 20130627
  Serious: No
  Sender: FDA-Public Use
  Company Number: US-VERTEX PHARMACEUTICAL INC.-2012-020403

PATIENT

DRUGS (5)
  1. VX-950 (TELAPREVIR) [Suspect]
     Indication: HEPATITIS C
     Dosage: 750 mg, tid
     Route: 048
     Dates: start: 2012
  2. PEGASYS [Concomitant]
     Indication: HEPATITIS C
     Dosage: 180 ?g, UNK
     Route: 058
     Dates: start: 2012
  3. RIBASPHERE [Concomitant]
     Indication: HEPATITIS C
     Dosage: 600 mg, UNK
     Route: 048
     Dates: start: 2012
  4. BENAZEPRIL W/HYDROCHLOROTHIAZIDE [Concomitant]
     Dosage: 2 DF, qd
     Route: 048
  5. METOPROLOL [Concomitant]
     Dosage: 1 DF, qd
     Route: 048

REACTIONS (3)
  - Mood swings [Not Recovered/Not Resolved]
  - Drug ineffective [Unknown]
  - Pruritus generalised [Not Recovered/Not Resolved]
